FAERS Safety Report 15317483 (Version 1)
Quarter: 2018Q3

REPORT INFORMATION
  Report Type: Spontaneous
  Country: US (occurrence: US)
  Receive Date: 20180824
  Receipt Date: 20180824
  Transmission Date: 20181010
  Serious: Yes (Other)
  Sender: FDA-Public Use
  Company Number: US-GUERBET-US-20180211

PATIENT
  Age: 34 Week
  Sex: Male

DRUGS (2)
  1. OPTIRAY 240 [Suspect]
     Active Substance: IOVERSOL
     Indication: IMAGING PROCEDURE
     Route: 027
  2. DOXYCYCLINE. [Concomitant]
     Active Substance: DOXYCYCLINE
     Indication: SCLEROTHERAPY
     Route: 065

REACTIONS (2)
  - Drug administered to patient of inappropriate age [Recovered/Resolved]
  - Primary hypothyroidism [Recovered/Resolved]
